FAERS Safety Report 7212416-9 (Version None)
Quarter: 2011Q1

REPORT INFORMATION
  Report Type: 
  Country: None (occurrence: None)
  Receive Date: 20110106
  Receipt Date: 20110103
  Transmission Date: 20110831
  Serious: Yes (Hospitalization, Other)
  Sender: FDA-Public Use
  Company Number: US-AMGEN-USASP2011000222

PATIENT

DRUGS (2)
  1. ENBREL [Suspect]
     Indication: PSORIATIC ARTHROPATHY
     Dosage: 50 MG, Q2WK
     Dates: start: 20041018
  2. ENBREL [Suspect]
     Indication: PSORIASIS

REACTIONS (14)
  - SWELLING FACE [None]
  - URTICARIA [None]
  - HEADACHE [None]
  - ERYTHEMA OF EYELID [None]
  - PRURITUS GENERALISED [None]
  - CHEST DISCOMFORT [None]
  - EYELIDS PRURITUS [None]
  - RESPIRATORY TRACT CONGESTION [None]
  - DYSPHAGIA [None]
  - SWELLING [None]
  - DIVERTICULITIS [None]
  - ERYTHEMA [None]
  - EYELID OEDEMA [None]
  - FEELING HOT [None]
